FAERS Safety Report 11672589 (Version 1)
Quarter: 2015Q4

REPORT INFORMATION
  Report Type: Spontaneous
  Country: US (occurrence: None)
  Receive Date: 20151026
  Receipt Date: 20151026
  Transmission Date: 20160304
  Serious: Yes (Other)
  Sender: FDA-Public Use
  Company Number: None

PATIENT
  Age: 64 Year
  Sex: Male
  Weight: 74.8 kg

DRUGS (17)
  1. PROAIR INHALER [Concomitant]
  2. ACETAMINOPHEN. [Concomitant]
     Active Substance: ACETAMINOPHEN
  3. DOCETAXEL. [Concomitant]
     Active Substance: DOCETAXEL
  4. PEGFILGRASTRIM [Concomitant]
  5. CYRAMZA [Suspect]
     Active Substance: RAMUCIRUMAB
     Indication: LUNG NEOPLASM MALIGNANT
     Dosage: 680MG?Q3WEEKS?IVPB
     Dates: start: 20150418, end: 20150826
  6. PREDNISONE. [Concomitant]
     Active Substance: PREDNISONE
  7. LOPERAMIDE [Concomitant]
     Active Substance: LOPERAMIDE
  8. PANTOPROZOLE [Concomitant]
  9. RAMUCIRUMAB [Concomitant]
     Active Substance: RAMUCIRUMAB
  10. DENOSUMAB [Concomitant]
     Active Substance: DENOSUMAB
  11. MULTIVITAMIN [Concomitant]
     Active Substance: VITAMINS
  12. LORATIDINE [Concomitant]
     Active Substance: LORATADINE
  13. NORCO [Concomitant]
     Active Substance: ACETAMINOPHEN\HYDROCODONE BITARTRATE
  14. LORAZEPAM. [Concomitant]
     Active Substance: LORAZEPAM
  15. DOCETAXEL. [Concomitant]
     Active Substance: DOCETAXEL
  16. DEXAMETHASSONE [Concomitant]
  17. DOCETAXEL 160MG/160ML SANDOZ [Suspect]
     Active Substance: DOCETAXEL
     Indication: LUNG NEOPLASM MALIGNANT
     Dosage: 135MG?Q3WEEKS?IVPB
     Dates: start: 20150418, end: 20150826

REACTIONS (4)
  - Asthenia [None]
  - Stevens-Johnson syndrome [None]
  - Erythema multiforme [None]
  - Dyspnoea [None]

NARRATIVE: CASE EVENT DATE: 20150916
